FAERS Safety Report 17337064 (Version 1)
Quarter: 2020Q1

REPORT INFORMATION
  Report Type: Other
  Country: DE (occurrence: DE)
  Receive Date: 20200129
  Receipt Date: 20200129
  Transmission Date: 20200409
  Serious: No
  Sender: FDA-Public Use
  Company Number: DE-LUPIN PHARMACEUTICALS INC.-2019-08408

PATIENT
  Age: 58 Year
  Sex: Female
  Weight: 100 kg

DRUGS (2)
  1. METOPROLOL. [Suspect]
     Active Substance: METOPROLOL
     Indication: HYPERTENSION
     Dosage: UNK (47.5)
     Route: 048
     Dates: start: 2016, end: 20191209
  2. SERTRALINE [Suspect]
     Active Substance: SERTRALINE HYDROCHLORIDE
     Indication: DEPRESSION
     Dosage: UNK (100 OR 150)
     Route: 048
     Dates: start: 2016, end: 20191209

REACTIONS (7)
  - Dandruff [Not Recovered/Not Resolved]
  - Erythema [Not Recovered/Not Resolved]
  - Alopecia [Not Recovered/Not Resolved]
  - Eczema [Not Recovered/Not Resolved]
  - Skin exfoliation [Not Recovered/Not Resolved]
  - Rash [Not Recovered/Not Resolved]
  - Pruritus [Not Recovered/Not Resolved]

NARRATIVE: CASE EVENT DATE: 20180202
